FAERS Safety Report 16856221 (Version 2)
Quarter: 2019Q4

REPORT INFORMATION
  Report Type: Spontaneous
  Country: US (occurrence: US)
  Receive Date: 20190926
  Receipt Date: 20191202
  Transmission Date: 20200122
  Serious: No
  Sender: FDA-Public Use
  Company Number: US-PFIZER INC-2019413335

PATIENT
  Age: 71 Year
  Sex: Female

DRUGS (21)
  1. IMODIUM [Concomitant]
     Active Substance: LOPERAMIDE HYDROCHLORIDE
     Dosage: 2 MG, AS NEEDED (EVERY 4 HOURS AS NEEDED)
     Route: 048
  2. IBRANCE [Suspect]
     Active Substance: PALBOCICLIB
     Indication: BREAST CANCER FEMALE
     Dosage: 125 MG, 1X/DAY
     Dates: start: 20180910
  3. IBRANCE [Suspect]
     Active Substance: PALBOCICLIB
     Indication: NEOPLASM MALIGNANT
  4. LIPITOR [Concomitant]
     Active Substance: ATORVASTATIN CALCIUM
     Dosage: 20 MG, 1X/DAY [EVERY EVENING]
     Route: 048
  5. IBRANCE [Concomitant]
     Active Substance: PALBOCICLIB
     Dosage: 125 MG, CYCLIC(EVERY DAY FOR 21 DAYS THEN STOP FOR 7 DAYS (3 WEEKS ON, 1 WEEK OFF), REPEAT CYCLES
     Route: 048
  6. NOVOLIN N [Concomitant]
     Active Substance: INSULIN HUMAN
     Dosage: 60 IU, UNK
     Route: 058
  7. DESYREL [Concomitant]
     Active Substance: TRAZODONE HYDROCHLORIDE
     Dosage: 25 MG, 1X/DAY [TAKE 0.5 TABS (25MG ORAL) BY MOUTH EVERY NIGHT ]
     Route: 048
  8. MOTRIN IB [Concomitant]
     Active Substance: IBUPROFEN
     Dosage: 800 MG, AS NEEDED [THREE TIMES A DAY AS NEEDED]
     Route: 048
  9. COZAAR [Concomitant]
     Active Substance: LOSARTAN POTASSIUM
     Dosage: 50 MG, 1X/DAY
     Route: 048
  10. INSULIN REGULAR HUMAN [Concomitant]
     Dosage: UNK (USE UP TO 25U WITH EACH MEAL PER SLIDING SCALE)
  11. PRILOSEC [Concomitant]
     Active Substance: OMEPRAZOLE MAGNESIUM
     Dosage: 20 MG, 1X/DAY
     Route: 048
  12. OREGANO OIL [Concomitant]
     Dosage: 450 MG, UNK
     Route: 048
  13. VITAMIN D3 [Concomitant]
     Active Substance: CHOLECALCIFEROL
     Dosage: UNK
     Route: 048
  14. BUMEX [Concomitant]
     Active Substance: BUMETANIDE
     Dosage: 2 MG, 1X/DAY
     Route: 048
  15. FEMARA [Concomitant]
     Active Substance: LETROZOLE
     Dosage: 2.5 MG, 1X/DAY
     Route: 048
  16. CLARITIN [Concomitant]
     Active Substance: LORATADINE
     Dosage: 10 MG, 1X/DAY
     Route: 048
  17. MAGNESIUM [Concomitant]
     Active Substance: MAGNESIUM
     Dosage: 800 MG, UNK
     Route: 048
  18. K-DUR [Concomitant]
     Active Substance: POTASSIUM CHLORIDE
     Dosage: 10 MEQ, 1X/DAY
     Route: 048
  19. SYNTHROID [Concomitant]
     Active Substance: LEVOTHYROXINE SODIUM
     Dosage: 75 UG, 1X/DAY
     Route: 048
  20. GLUCOPHAGE [Concomitant]
     Active Substance: METFORMIN HYDROCHLORIDE
     Dosage: 1000 MG, 1X/DAY
     Route: 048
  21. NOVOLIN [Concomitant]
     Active Substance: INSULIN HUMAN
     Dosage: 15 IU, UNK [15 UNITS BY SUBCUTANEOUS ROUTE TAKES 22 UNITS IF TAKING NATURAL BODY SOLUTIONS]
     Route: 058

REACTIONS (1)
  - Confusional state [Recovered/Resolved]
